FAERS Safety Report 5731802-7 (Version None)
Quarter: 2008Q2

REPORT INFORMATION
  Report Type: 
  Country: None (occurrence: None)
  Receive Date: 20080506
  Receipt Date: 20080422
  Transmission Date: 20081010
  Serious: Yes (Hospitalization)
  Sender: FDA-Public Use
  Company Number: 2008000820

PATIENT
  Age: 75 Year
  Sex: Female

DRUGS (4)
  1. ERLOTINIB (ERLOTINIB HCL) (TABLET) (ERLOTINIB HCL) [Suspect]
     Indication: LUNG ADENOCARCINOMA
     Dosage: (150 MG,QD), ORAL
     Route: 048
     Dates: start: 20080208, end: 20080318
  2. LANIRAPID (METILDIGOXIN) [Concomitant]
  3. VERAPAMIL HYDROCHLORIDE [Concomitant]
  4. ZOLPIDEM TARTRATE [Concomitant]

REACTIONS (5)
  - ANAEMIA [None]
  - HAEMOPTYSIS [None]
  - INTERSTITIAL LUNG DISEASE [None]
  - PULMONARY ALVEOLAR HAEMORRHAGE [None]
  - PYREXIA [None]
